FAERS Safety Report 4415031-5 (Version None)
Quarter: 2004Q3

REPORT INFORMATION
  Report Type: 
  Country: None (occurrence: None)
  Receive Date: 20040802
  Receipt Date: 20040802
  Transmission Date: 20050211
  Serious: Yes (Other)
  Sender: FDA-Public Use
  Company Number: None

PATIENT
  Age: 21 Year
  Sex: Male

DRUGS (1)
  1. FLUDARABINE PHOSPHATE [Suspect]
     Indication: T-CELL LYMPHOMA
     Dosage: 30 MG /M2
     Dates: start: 20031201, end: 20031204

REACTIONS (1)
  - NO ADVERSE DRUG EFFECT [None]
